APPROVED DRUG PRODUCT: DOXORUBICIN HYDROCHLORIDE
Active Ingredient: DOXORUBICIN HYDROCHLORIDE
Strength: 200MG/100ML
Dosage Form/Route: INJECTABLE;INJECTION
Application: A064140 | Product #002
Applicant: TEVA PHARMACEUTICALS USA
Approved: Jul 28, 1995 | RLD: No | RS: No | Type: DISCN